FAERS Safety Report 16860367 (Version 9)
Quarter: 2022Q2

REPORT INFORMATION
  Report Type: Other
  Country: FR (occurrence: FR)
  Receive Date: 20190927
  Receipt Date: 20220404
  Transmission Date: 20220721
  Serious: Yes (Hospitalization, Other)
  Sender: FDA-Public Use
  Company Number: FR-NOVPHSZ-PHHY2019FR165504

PATIENT
  Age: 69 Year
  Sex: Male
  Weight: 61 kg

DRUGS (8)
  1. MYCOPHENOLATE MOFETIL [Suspect]
     Active Substance: MYCOPHENOLATE MOFETIL
     Indication: Immunosuppression
     Dosage: DRUG WITHDRAWN
     Route: 065
     Dates: start: 20190330, end: 20190704
  2. MYCOPHENOLATE MOFETIL [Suspect]
     Active Substance: MYCOPHENOLATE MOFETIL
     Indication: Renal transplant
     Route: 065
     Dates: start: 20190710
  3. TACROLIMUS [Suspect]
     Active Substance: TACROLIMUS
     Indication: Renal transplant
     Dosage: 12 MG, UNK
     Route: 048
     Dates: start: 20190330
  4. TACROLIMUS [Suspect]
     Active Substance: TACROLIMUS
     Dosage: 12 MG, UNK
     Route: 048
     Dates: start: 20191030
  5. TACROLIMUS [Suspect]
     Active Substance: TACROLIMUS
     Dosage: 12 MG, UNK
     Route: 048
     Dates: start: 20190806
  6. PREDNISONE [Suspect]
     Active Substance: PREDNISONE
     Indication: Immunosuppression
     Route: 065
     Dates: start: 20190330
  7. ANAKINRA [Concomitant]
     Active Substance: ANAKINRA
     Indication: Gout
     Dosage: UNK
     Route: 065
     Dates: start: 2011
  8. PREDNISONE [Concomitant]
     Active Substance: PREDNISONE
     Indication: Prophylaxis against transplant rejection
     Route: 065
     Dates: start: 20190330

REACTIONS (8)
  - Prostatitis [Recovered/Resolved]
  - Renal impairment [Recovered/Resolved]
  - Renal impairment [Recovered/Resolved]
  - Renal impairment [Recovered/Resolved]
  - Pulmonary tuberculosis [Recovering/Resolving]
  - Pneumonia [Recovering/Resolving]
  - Pancytopenia [Recovered/Resolved]
  - Pyelonephritis [Recovered/Resolved]

NARRATIVE: CASE EVENT DATE: 20190621
